FAERS Safety Report 8591676-6 (Version None)
Quarter: 2012Q3

REPORT INFORMATION
  Report Type: 
  Country: None (occurrence: None)
  Receive Date: 20120814
  Receipt Date: 20120801
  Transmission Date: 20120928
  Serious: Yes (Hospitalization)
  Sender: FDA-Public Use
  Company Number: US-ENDO PHARMACEUTICALS INC.-OPCR20121721

PATIENT
  Sex: Male

DRUGS (2)
  1. OPANA ER [Suspect]
     Dosage: 40 MG
     Route: 048
     Dates: start: 20120101
  2. OPANA ER [Suspect]
     Indication: PRODUCT USED FOR UNKNOWN INDICATION
     Dosage: 20 MG
     Route: 048
     Dates: start: 20120101

REACTIONS (1)
  - INTESTINAL HAEMORRHAGE [None]
